FAERS Safety Report 7273599-8 (Version None)
Quarter: 2011Q1

REPORT INFORMATION
  Report Type: 
  Country: None (occurrence: None)
  Receive Date: 20110203
  Receipt Date: 20101118
  Transmission Date: 20110831
  Serious: No
  Sender: FDA-Public Use
  Company Number: US-ABBOTT-10P-163-0686909-00

PATIENT
  Sex: Female
  Weight: 77.18 kg

DRUGS (2)
  1. SYNTHROID [Suspect]
     Indication: THYROID CANCER
  2. SYNTHROID [Suspect]
     Indication: THYROIDECTOMY

REACTIONS (4)
  - HYPERHIDROSIS [None]
  - BLOOD THYROID STIMULATING HORMONE INCREASED [None]
  - FEELING HOT [None]
  - FATIGUE [None]
